FAERS Safety Report 6693722-3 (Version None)
Quarter: 2010Q2

REPORT INFORMATION
  Report Type: 
  Country: None (occurrence: None)
  Receive Date: 20100421
  Receipt Date: 20100405
  Transmission Date: 20101027
  Serious: Yes (Other)
  Sender: FDA-Public Use
  Company Number: CL-82(1)-2010

PATIENT
  Age: 44 Year
  Sex: Female

DRUGS (13)
  1. ONDANSETRON [Suspect]
     Indication: PROPHYLAXIS OF NAUSEA AND VOMITING
     Dosage: 4 MG DAILY, INTRAVENOUS
     Route: 042
  2. QUETIAPINE [Suspect]
  3. DULOXETINE HYDROCHLORIDE [Suspect]
  4. FENTANYL-100 [Suspect]
     Indication: INDUCTION OF ANAESTHESIA
     Dosage: 100 UG DAILY, INTRAVENOUS
     Route: 042
  5. LITHIUM CARBONATE [Suspect]
  6. CLONAZEPAM [Concomitant]
  7. LAMOTRIGINE [Concomitant]
  8. TOPIRAMATE [Concomitant]
  9. PROPOFOL [Concomitant]
  10. MIDAZOLAM HCL [Concomitant]
  11. HYDROMORPHONE HCL [Concomitant]
  12. ROCURONIUM BROMIDE [Concomitant]
  13. DESFLURANE [Concomitant]

REACTIONS (1)
  - SEROTONIN SYNDROME [None]
